FAERS Safety Report 13277488 (Version 1)
Quarter: 2017Q1

REPORT INFORMATION
  Report Type: Spontaneous
  Country: SI (occurrence: SI)
  Receive Date: 20170228
  Receipt Date: 20170228
  Transmission Date: 20170428
  Serious: Yes (Other)
  Sender: FDA-Public Use
  Company Number: SI-REGENERON PHARMACEUTICALS, INC.-2017-12596

PATIENT

DRUGS (1)
  1. EYLEA [Suspect]
     Active Substance: AFLIBERCEPT
     Indication: DIABETIC RETINAL OEDEMA
     Dosage: 1 DF, Q1MON, TOTAL 5 INJECTIONS OF EYLEA INTO EACH EYE
     Dates: start: 201509, end: 201603

REACTIONS (5)
  - Posterior capsule rupture [Unknown]
  - Macular fibrosis [Unknown]
  - Drug ineffective [Unknown]
  - Cataract subcapsular [Unknown]
  - Eye operation [Unknown]

NARRATIVE: CASE EVENT DATE: 201511
